FAERS Safety Report 23386312 (Version 1)
Quarter: 2024Q1

REPORT INFORMATION
  Report Type: Spontaneous
  Country: US (occurrence: US)
  Receive Date: 20240110
  Receipt Date: 20240110
  Transmission Date: 20240409
  Serious: Yes (Hospitalization)
  Sender: FDA-Public Use
  Company Number: US-CHIESI-2023CHF06686

PATIENT
  Age: 3 Year
  Sex: Male

DRUGS (4)
  1. BETHKIS [Suspect]
     Active Substance: TOBRAMYCIN
     Indication: Dependence on respirator
     Dosage: 1 DOSAGE FORM, BID
     Dates: start: 202004
  2. BETHKIS [Suspect]
     Active Substance: TOBRAMYCIN
     Indication: Staphylococcal infection
  3. BETHKIS [Suspect]
     Active Substance: TOBRAMYCIN
     Indication: Bacterial disease carrier
  4. BETHKIS [Suspect]
     Active Substance: TOBRAMYCIN
     Indication: Off label use

REACTIONS (3)
  - Ill-defined disorder [Unknown]
  - Off label use [Not Recovered/Not Resolved]
  - Off label use [Not Recovered/Not Resolved]

NARRATIVE: CASE EVENT DATE: 20200401
